FAERS Safety Report 8780116 (Version 1)
Quarter: 2012Q4

REPORT INFORMATION
  Report Type: Spontaneous
  Country: US (occurrence: None)
  Receive Date: 20120831
  Receipt Date: 20120831
  Transmission Date: 20130627
  Serious: Yes (Other)
  Sender: FDA-Public Use
  Company Number: None

PATIENT
  Age: 50 Year
  Sex: Female
  Weight: 104.3 kg

DRUGS (1)
  1. RIFAMPICIN [Suspect]
     Dates: start: 20110726, end: 20120722

REACTIONS (2)
  - Upper respiratory tract infection [None]
  - Chest X-ray abnormal [None]
